FAERS Safety Report 10210157 (Version 1)
Quarter: 2014Q2

REPORT INFORMATION
  Report Type: Report from Study
  Country: MX (occurrence: MX)
  Receive Date: 20140602
  Receipt Date: 20140602
  Transmission Date: 20141212
  Serious: Yes (Other)
  Sender: FDA-Public Use
  Company Number: MX-ORION CORPORATION ORION PHARMA-ENTC2014-0185

PATIENT
  Age: 75 Year
  Sex: Male

DRUGS (5)
  1. STALEVO [Suspect]
     Indication: PARKINSON^S DISEASE
     Dosage: STRENGTH: 75/18.75/200 MG
     Route: 048
     Dates: start: 2014
  2. STALEVO [Suspect]
     Dosage: STRENGTH: 100/25/200 MG
     Route: 048
     Dates: start: 201405
  3. STALEVO [Suspect]
     Dosage: STRENGTH: 125/31.25/200 MG
     Route: 048
     Dates: end: 201405
  4. STALEVO [Suspect]
     Dosage: STRENGTH: 100/25/200 MG
     Route: 048
  5. SIFROL [Concomitant]
     Indication: TREMOR
     Dosage: STRENGTH: 75 MG; BEFORE SLEEP
     Route: 065
     Dates: start: 2005

REACTIONS (9)
  - Drug ineffective [Unknown]
  - Drug intolerance [Unknown]
  - Feeling abnormal [Unknown]
  - Malaise [Unknown]
  - Nausea [Recovered/Resolved]
  - Dizziness [Recovered/Resolved]
  - Thirst [Recovered/Resolved]
  - Deafness [Not Recovered/Not Resolved]
  - Therapy cessation [Unknown]
